FAERS Safety Report 6829991-6 (Version None)
Quarter: 2010Q3

REPORT INFORMATION
  Report Type: 
  Country: None (occurrence: None)
  Receive Date: 20100711
  Receipt Date: 20100419
  Transmission Date: 20110219
  Serious: No
  Sender: FDA-Public Use
  Company Number: US-ALLERGAN-1005149US

PATIENT
  Age: 38 Year
  Sex: Female

DRUGS (6)
  1. LATISSE [Suspect]
     Indication: GROWTH OF EYELASHES
     Dosage: 1 GTT, QHS
  2. LATISSE [Suspect]
     Dosage: UNK
  3. LATISSE [Suspect]
  4. LATISSE [Suspect]
  5. ZYRTEC [Concomitant]
     Indication: SEASONAL ALLERGY
     Dosage: UNK
  6. MUCINEX [Concomitant]
     Indication: SEASONAL ALLERGY
     Dosage: UNK

REACTIONS (1)
  - MADAROSIS [None]
